FAERS Safety Report 4345285-5 (Version None)
Quarter: 2004Q2

REPORT INFORMATION
  Report Type: 
  Country: None (occurrence: None)
  Receive Date: 20040420
  Receipt Date: 20040413
  Transmission Date: 20050107
  Serious: Yes (Hospitalization, Other)
  Sender: FDA-Public Use
  Company Number: 2003156268US

PATIENT
  Age: 35 Year
  Sex: Male

DRUGS (3)
  1. BEXTRA [Suspect]
     Indication: MYELITIS TRANSVERSE
     Dosage: 20 MG, QD, ORAL
     Route: 048
  2. LORTAB [Concomitant]
  3. XANAX [Concomitant]

REACTIONS (3)
  - DERMATITIS EXFOLIATIVE [None]
  - SKIN GRAFT [None]
  - SKIN ULCER [None]
